FAERS Safety Report 4934924-3 (Version None)
Quarter: 2006Q1

REPORT INFORMATION
  Report Type: 
  Country: None (occurrence: None)
  Receive Date: 20060306
  Receipt Date: 20060306
  Transmission Date: 20060701
  Serious: Yes (Disabling)
  Sender: FDA-Public Use
  Company Number: None

PATIENT
  Age: 85 Year
  Sex: Female
  Weight: 65.8 kg

DRUGS (1)
  1. VISIPAQUE 320 [Suspect]
     Indication: CONVULSION
     Dosage: 320 MG ONE TIME IV BOLUS
     Route: 040
     Dates: start: 20060109, end: 20060109

REACTIONS (3)
  - ERYTHEMA [None]
  - INFUSION RELATED REACTION [None]
  - PRURITUS [None]
